FAERS Safety Report 5574233-5 (Version None)
Quarter: 2007Q4

REPORT INFORMATION
  Report Type: 
  Country: None (occurrence: None)
  Receive Date: 20071227
  Receipt Date: 20071214
  Transmission Date: 20080405
  Serious: Yes (Death, Other)
  Sender: FDA-Public Use
  Company Number: TR-BRISTOL-MYERS SQUIBB COMPANY-14009872

PATIENT
  Age: 17 Year
  Sex: Male

DRUGS (5)
  1. CISPLATIN [Suspect]
     Indication: TESTICULAR GERM CELL CANCER
     Dosage: (20 MG/M SUP (2)/DAY) FOR 5 DAYS IN A CYCLE
  2. ETOPOSIDE [Suspect]
     Indication: TESTICULAR GERM CELL CANCER
     Dosage: (120 MG/M SUP (2)/DAY) FOR 3 DAYS IN A CYCLE
  3. BLEOMYCIN [Suspect]
     Indication: TESTICULAR GERM CELL CANCER
     Dosage: DAYS 1, 8 + 15 OF 21 DAY CYCLE.
  4. PACLITAXEL [Suspect]
     Indication: TESTICULAR GERM CELL CANCER
  5. GEMCITABINE [Suspect]
     Indication: TESTICULAR GERM CELL CANCER

REACTIONS (3)
  - CEREBROVASCULAR ACCIDENT [None]
  - FEBRILE NEUTROPENIA [None]
  - MALIGNANT NEOPLASM PROGRESSION [None]
